FAERS Safety Report 7909408 (Version 11)
Quarter: 2012Q4

REPORT INFORMATION
  Report Type: 
  Country: US (occurrence: US)
  Receive Date: 20110421
  Receipt Date: 20121119
  Transmission Date: 20130627
  Serious: Yes (Other)
  Sender: FDA-Public Use
  Company Number: US-ASTRAZENECA-2010SE21187

PATIENT
  Age: 75 Year
  Sex: Female

DRUGS (4)
  1. TOPROL XL [Suspect]
     Route: 048
     Dates: start: 200910
  2. TOPROL XL [Suspect]
     Route: 048
  3. STEROID [Suspect]
  4. CLONODIN [Concomitant]

REACTIONS (32)
  - Mobility decreased [Unknown]
  - Peroneal muscular atrophy [Unknown]
  - Intervertebral disc protrusion [Unknown]
  - Back injury [Unknown]
  - Dysstasia [Unknown]
  - Fibromyalgia [Unknown]
  - Accident at work [Unknown]
  - Heart rate increased [Unknown]
  - Hypertension [Unknown]
  - Malaise [Unknown]
  - Feeling abnormal [Unknown]
  - Pain [Unknown]
  - Angina pectoris [Unknown]
  - Myalgia [Unknown]
  - Adverse event [Unknown]
  - Malaise [Unknown]
  - Multiple sclerosis [Unknown]
  - Dysphonia [Unknown]
  - Blood pressure abnormal [Unknown]
  - Musculoskeletal stiffness [Unknown]
  - Pigmentation disorder [Unknown]
  - Eye disorder [Unknown]
  - Heart rate decreased [Unknown]
  - Retching [Unknown]
  - Nausea [Unknown]
  - Headache [Unknown]
  - Depressed mood [Unknown]
  - Vomiting [Unknown]
  - Dyspepsia [Unknown]
  - Circumstance or information capable of leading to medication error [Unknown]
  - Drug dose omission [Unknown]
  - Therapeutic response decreased [Unknown]
